FAERS Safety Report 15803456 (Version 1)
Quarter: 2019Q1

REPORT INFORMATION
  Report Type: Spontaneous
  Country: US (occurrence: US)
  Receive Date: 20190109
  Receipt Date: 20190109
  Transmission Date: 20190417
  Serious: Yes (Death, Other)
  Sender: FDA-Public Use
  Company Number: US-OXFORD PHARMACEUTICALS, LLC-2018OXF01599

PATIENT
  Age: 53 Year
  Sex: Male

DRUGS (3)
  1. BUPIVICAINE [Concomitant]
     Active Substance: BUPIVACAINE
     Route: 037
  2. DILAUDID [Concomitant]
     Active Substance: HYDROMORPHONE HYDROCHLORIDE
     Route: 037
  3. BACLOFEN. [Suspect]
     Active Substance: BACLOFEN
     Route: 037

REACTIONS (7)
  - Hypotension [Unknown]
  - Cardiac arrest [Fatal]
  - Brain death [Fatal]
  - Myoclonus [Fatal]
  - Toxic encephalopathy [Fatal]
  - Drug withdrawal syndrome [Fatal]
  - Pyrexia [Unknown]
